FAERS Safety Report 8597928-8 (Version None)
Quarter: 2012Q3

REPORT INFORMATION
  Report Type: 
  Country: None (occurrence: None)
  Receive Date: 20120802
  Receipt Date: 20120719
  Transmission Date: 20120928
  Serious: Yes (Disabling)
  Sender: FDA-Public Use
  Company Number: 2012S1000701

PATIENT
  Age: 68 Year
  Sex: Female
  Weight: 63.2 kg

DRUGS (18)
  1. PNEUMOCOCCAL VACCINE [Concomitant]
  2. PREMARIN [Concomitant]
  3. FISH OIL [Concomitant]
  4. ZOLPIDEM TARTRATE [Concomitant]
  5. NITROGLYCERIN [Concomitant]
  6. ASPIRIN [Concomitant]
  7. VITAMIN-MINERAL COMPOUND TAB [Concomitant]
  8. ATENOLOL [Concomitant]
  9. FEXOFENADINE HCL [Concomitant]
  10. VITAMIN D [Concomitant]
  11. SYNTHROID [Concomitant]
  12. CLONIDINE [Concomitant]
  13. LIVALO [Suspect]
     Indication: BLOOD CHOLESTEROL ABNORMAL
     Dosage: PO
     Route: 048
     Dates: start: 20111128, end: 20111228
  14. LISINOPRIL [Concomitant]
  15. FOSAMAX [Concomitant]
  16. ADVAIR [Concomitant]
  17. ALBUTEROL SULFATE [Concomitant]
  18. ALLEGRA-D 12 HOUR [Concomitant]

REACTIONS (15)
  - HYPOPNOEA [None]
  - BLOOD PRESSURE INCREASED [None]
  - PAIN IN EXTREMITY [None]
  - ASTHMA [None]
  - ORAL DISORDER [None]
  - DEPRESSION [None]
  - PLEURAL EFFUSION [None]
  - PNEUMONIA [None]
  - HEADACHE [None]
  - ASTHENIA [None]
  - FATIGUE [None]
  - CORONARY ARTERIAL STENT INSERTION [None]
  - BACK PAIN [None]
  - CONSTIPATION [None]
  - ANXIETY [None]
